FAERS Safety Report 6884926-5 (Version None)
Quarter: 2010Q3

REPORT INFORMATION
  Report Type: 
  Country: None (occurrence: None)
  Receive Date: 20100729
  Receipt Date: 20070929
  Transmission Date: 20110219
  Serious: No
  Sender: FDA-Public Use
  Company Number: US-PFIZER INC-2007082528

PATIENT
  Sex: Female
  Weight: 68.1 kg

DRUGS (5)
  1. CELEBREX [Suspect]
     Indication: ARTHRITIS
     Dates: start: 20070924, end: 20070929
  2. LEVOTHYROXINE SODIUM [Concomitant]
  3. ACCURETIC [Concomitant]
  4. NORVASC [Concomitant]
  5. PREMARIN [Concomitant]

REACTIONS (1)
  - MIGRAINE [None]
